FAERS Safety Report 4991013-X (Version None)
Quarter: 2006Q2

REPORT INFORMATION
  Report Type: 
  Country: None (occurrence: None)
  Receive Date: 20060503
  Receipt Date: 20050920
  Transmission Date: 20061013
  Serious: Yes (Death, Hospitalization)
  Sender: FDA-Public Use
  Company Number: US-MERCK-0509USA03220

PATIENT
  Age: 82 Year
  Sex: Female
  Weight: 75 kg

DRUGS (17)
  1. VIOXX [Suspect]
     Indication: OSTEOARTHRITIS
     Route: 048
     Dates: start: 19990101, end: 20030911
  2. ULTRACET [Concomitant]
     Indication: ARTHRALGIA
     Route: 065
  3. ASPIRIN [Concomitant]
     Indication: ARTHRALGIA
     Route: 065
  4. ASPIRIN [Concomitant]
     Indication: PROPHYLAXIS
     Route: 065
  5. LIPITOR [Concomitant]
     Route: 065
  6. NASONEX [Concomitant]
     Indication: SINUS DISORDER
     Route: 065
  7. TENORMIN [Concomitant]
     Indication: CARDIAC DISORDER
     Route: 065
  8. VASOTEC [Concomitant]
     Indication: CARDIAC DISORDER
     Route: 065
  9. HUMULIN [Concomitant]
     Indication: DIABETES MELLITUS
     Route: 065
  10. LEVSIN [Concomitant]
     Route: 065
  11. ACETAMINOPHEN AND PROPOXYPHENE NAPSYLATE [Concomitant]
     Route: 065
  12. CARDURA [Concomitant]
     Indication: HYPERTENSION
     Route: 065
  13. NITROGLYCERIN [Concomitant]
     Indication: CARDIAC FAILURE CONGESTIVE
     Route: 065
  14. BECONASE AQ [Concomitant]
     Indication: SINUS DISORDER
     Route: 065
  15. PRILOSEC [Concomitant]
     Indication: DYSPEPSIA
     Route: 065
  16. LASIX [Concomitant]
     Indication: OEDEMA PERIPHERAL
     Route: 065
  17. ARICEPT [Concomitant]
     Indication: AMNESIA
     Route: 065

REACTIONS (32)
  - ARTERIAL OCCLUSIVE DISEASE [None]
  - CARDIAC DISORDER [None]
  - CARDIAC FAILURE CONGESTIVE [None]
  - CELLULITIS [None]
  - CEREBROVASCULAR ACCIDENT [None]
  - CHEST PAIN [None]
  - CONSTIPATION [None]
  - CORONARY ARTERY DISEASE [None]
  - DECUBITUS ULCER [None]
  - DEHYDRATION [None]
  - DEMENTIA [None]
  - DEPRESSION [None]
  - DIVERTICULUM [None]
  - DYSPNOEA [None]
  - ENTERITIS [None]
  - FUNGAL RASH [None]
  - GASTRIC DISORDER [None]
  - GASTROINTESTINAL HAEMORRHAGE [None]
  - HIATUS HERNIA [None]
  - HYPOTENSION [None]
  - ISCHAEMIC CARDIOMYOPATHY [None]
  - MYOCARDIAL INFARCTION [None]
  - PNEUMONIA ASPIRATION [None]
  - POST-TRAUMATIC STRESS DISORDER [None]
  - PULMONARY EMBOLISM [None]
  - REFLUX OESOPHAGITIS [None]
  - RENAL FAILURE [None]
  - SYNCOPE [None]
  - TRANSIENT ISCHAEMIC ATTACK [None]
  - URINARY TRACT INFECTION [None]
  - UROSEPSIS [None]
  - VASCULAR DEMENTIA [None]
